FAERS Safety Report 7468560-4 (Version None)
Quarter: 2011Q2

REPORT INFORMATION
  Report Type: 
  Country: None (occurrence: None)
  Receive Date: 20110509
  Receipt Date: 20110407
  Transmission Date: 20111010
  Serious: Yes (Death)
  Sender: FDA-Public Use
  Company Number: US-BAYER-200839175NA

PATIENT
  Age: 55 Year
  Sex: Female
  Weight: 76 kg

DRUGS (65)
  1. LANTUS [Concomitant]
  2. LONITEN [Concomitant]
  3. LEXAPRO [Concomitant]
  4. NORVASC [Concomitant]
  5. COREG [Concomitant]
  6. LIPITOR [Concomitant]
  7. DILAUDID [Concomitant]
  8. PHENERGAN HCL [Concomitant]
  9. ISORDIL [Concomitant]
  10. LOPRESSOR [Concomitant]
  11. ATROVENT [Concomitant]
  12. MAGNEVIST [Suspect]
     Indication: NUCLEAR MAGNETIC RESONANCE IMAGING BRAIN
     Dates: start: 20041023, end: 20041023
  13. VASOTEC [Concomitant]
  14. PROCRIT [Concomitant]
  15. NORCO [Concomitant]
  16. AMBIEN [Concomitant]
  17. CLONAZEPAM [Concomitant]
  18. OXYCODONE [Concomitant]
     Indication: PAIN
  19. PROTONIX [Concomitant]
  20. METOPROLOL TARTRATE [Concomitant]
  21. LISINOPRIL [Concomitant]
  22. IRON SULFATETHIAMIN COMPOUND TAB [Concomitant]
  23. ANTIVERT [Concomitant]
  24. PREVACID [Concomitant]
  25. IMDUR [Concomitant]
  26. NITROGLYCERIN [Concomitant]
  27. OMNISCAN [Suspect]
     Indication: NUCLEAR MAGNETIC RESONANCE IMAGING BRAIN
     Dates: start: 20001221, end: 20001221
  28. HUMALOG [Concomitant]
     Indication: DIABETES MELLITUS
  29. COUMADIN [Concomitant]
  30. OXYGEN [Concomitant]
     Indication: CHRONIC OBSTRUCTIVE PULMONARY DISEASE
  31. LANOXIN [Concomitant]
  32. DULCOLAX [Concomitant]
  33. INSULIN [Concomitant]
  34. ELAVIL [Concomitant]
  35. ALU-CAP [Concomitant]
  36. QUININE SULFATE [Concomitant]
  37. ALBUTEROL [Concomitant]
  38. MAGNEVIST [Suspect]
     Dosage: UNK
     Dates: start: 20010130, end: 20010130
  39. MAGNEVIST [Suspect]
     Dosage: UNK
     Dates: start: 20041024, end: 20041024
  40. ZOLOFT [Concomitant]
  41. NEURONTIN [Concomitant]
  42. MYLANTA [ALUMINIUM HYDROXIDE GEL, DRIED,MAGNESIUM HYDROXIDE,SIMETICONE [Concomitant]
  43. OPTIMARK [Suspect]
     Indication: NUCLEAR MAGNETIC RESONANCE IMAGING
     Dates: start: 20040611, end: 20040611
  44. REGLAN [Concomitant]
  45. PHOSLO [Concomitant]
  46. CATAPRES [Concomitant]
  47. NEPHROVITE [VIT C,VIT H,B5,B12,B9,B3,B6,B2,B1 HCL] [Concomitant]
  48. DURAGESIC-50 [Concomitant]
  49. RENAGEL [Concomitant]
  50. COZAAR [Concomitant]
  51. IRON SUPPLEMENT [Concomitant]
     Indication: ANAEMIA
  52. PLAVIX [Concomitant]
  53. ATACAND [Concomitant]
  54. VENOFER [Concomitant]
  55. ARANESP [Concomitant]
  56. HYDRALAZINE HCL [Concomitant]
  57. FLEXERIL [Concomitant]
  58. COMBIVENT [Concomitant]
  59. NYSTATIN [Concomitant]
  60. ZEMPLAR [Concomitant]
  61. VALIUM [Concomitant]
  62. ANTIBIOTICS [Concomitant]
  63. FOLIC ACID [Concomitant]
  64. ZESTRIL [Concomitant]
  65. XANAX [Concomitant]

REACTIONS (23)
  - ACTIVITIES OF DAILY LIVING IMPAIRED [None]
  - ANXIETY [None]
  - NEPHROGENIC SYSTEMIC FIBROSIS [None]
  - SCAR [None]
  - OEDEMA PERIPHERAL [None]
  - PAIN [None]
  - MOBILITY DECREASED [None]
  - SKIN DISCOLOURATION [None]
  - SKIN TIGHTNESS [None]
  - JOINT CONTRACTURE [None]
  - HYPOAESTHESIA [None]
  - EMOTIONAL DISTRESS [None]
  - SKIN WARM [None]
  - SKIN EXFOLIATION [None]
  - PAIN OF SKIN [None]
  - JOINT STIFFNESS [None]
  - RASH MACULAR [None]
  - SKIN HYPERTROPHY [None]
  - MUSCULAR WEAKNESS [None]
  - ANHEDONIA [None]
  - PARALYSIS [None]
  - CHEST PAIN [None]
  - DRY SKIN [None]
